FAERS Safety Report 7788218-1 (Version None)
Quarter: 2011Q3

REPORT INFORMATION
  Report Type: 
  Country: None (occurrence: None)
  Receive Date: 20110929
  Receipt Date: 20110929
  Transmission Date: 20111222
  Serious: Yes (Hospitalization)
  Sender: FDA-Public Use
  Company Number: None

PATIENT
  Sex: Male

DRUGS (1)
  1. TIKOSYN [Suspect]
     Indication: ATRIAL FIBRILLATION
     Dosage: 0.25MG BID PO
     Route: 048
     Dates: start: 20090128, end: 20110926

REACTIONS (2)
  - BACK PAIN [None]
  - PROSTATOMEGALY [None]
